FAERS Safety Report 8232448-1 (Version None)
Quarter: 2012Q1

REPORT INFORMATION
  Report Type: 
  Country: None (occurrence: None)
  Receive Date: 20120323
  Receipt Date: 20120316
  Transmission Date: 20120608
  Serious: Yes (Other)
  Sender: FDA-Public Use
  Company Number: FR-ABBOTT-11P-056-0803152-00

PATIENT
  Sex: Female
  Weight: 78 kg

DRUGS (6)
  1. MEDIATOR [Suspect]
     Indication: WEIGHT DECREASED
     Dosage: DAILY DOSE: 3 DOSAGE FORM
     Route: 065
     Dates: start: 20020717, end: 20030514
  2. INDAPAMIDE [Suspect]
     Indication: PRODUCT USED FOR UNKNOWN INDICATION
     Dosage: DAILY DOSE: 1.5 MILLIGRAM(S)
     Route: 048
  3. ACETAMINOPHEN W/ CODEINE [Suspect]
     Indication: PRODUCT USED FOR UNKNOWN INDICATION
     Dosage: DAILY DOSE:  UNKNOWN
     Route: 048
  4. ESTRADIOL [Suspect]
     Indication: PRODUCT USED FOR UNKNOWN INDICATION
     Dosage: DAILY DOSE:  UNKNOWN
     Route: 062
  5. PROGESTERONE [Suspect]
     Indication: PRODUCT USED FOR UNKNOWN INDICATION
     Dosage: DAILY DOSE:  UNKNOWN
     Route: 065
  6. RAMIPRIL [Suspect]
     Indication: PRODUCT USED FOR UNKNOWN INDICATION
     Dosage: DAILY DOSE: 10 MILLIGRAM(S)
     Route: 048

REACTIONS (2)
  - AORTIC VALVE DISEASE [None]
  - MITRAL VALVE DISEASE [None]
